FAERS Safety Report 12958584 (Version 1)
Quarter: 2016Q4

REPORT INFORMATION
  Report Type: Spontaneous
  Country: US (occurrence: US)
  Receive Date: 20161121
  Receipt Date: 20161121
  Transmission Date: 20170207
  Serious: No
  Sender: FDA-Public Use
  Company Number: US-TEVA-658055USA

PATIENT
  Sex: Male
  Weight: 86.26 kg

DRUGS (1)
  1. BUDESONIDE. [Suspect]
     Active Substance: BUDESONIDE
     Indication: EMPHYSEMA
     Route: 065

REACTIONS (3)
  - Dysphonia [Unknown]
  - Oropharyngeal pain [Unknown]
  - Product use issue [Unknown]
